FAERS Safety Report 5448800-3 (Version None)
Quarter: 2007Q3

REPORT INFORMATION
  Report Type: 
  Country: None (occurrence: None)
  Receive Date: 20070911
  Receipt Date: 20070619
  Transmission Date: 20080115
  Serious: No
  Sender: FDA-Public Use
  Company Number: US-BRISTOL-MYERS SQUIBB COMPANY-13819313

PATIENT
  Age: 51 Year
  Sex: Female
  Weight: 66 kg

DRUGS (7)
  1. EMSAM [Suspect]
     Indication: DEPRESSION
     Route: 062
     Dates: start: 20070101
  2. ATENOLOL [Concomitant]
  3. HYDROCHLOROTHIAZIDE [Concomitant]
  4. PROMETRIUM [Concomitant]
  5. ALBUTEROL [Concomitant]
  6. ACYCLOVIR [Concomitant]
  7. ESTROGENIC SUBSTANCE [Concomitant]

REACTIONS (1)
  - APPLICATION SITE RASH [None]
